FAERS Safety Report 5942258-3 (Version None)
Quarter: 2008Q4

REPORT INFORMATION
  Report Type: 
  Country: None (occurrence: None)
  Receive Date: 20081105
  Receipt Date: 20081028
  Transmission Date: 20090506
  Serious: Yes (Other)
  Sender: FDA-Public Use
  Company Number: IL-BRISTOL-MYERS SQUIBB COMPANY-14394522

PATIENT
  Age: 47 Year
  Sex: Female

DRUGS (2)
  1. CETUXIMAB [Suspect]
     Indication: BREAST CANCER METASTATIC
     Dosage: THERAPY STARTED ON 29-JUL-2008, INTERRUPTED ON 10-OCT-2008.
     Route: 041
     Dates: start: 20081008, end: 20081008
  2. CISPLATIN [Suspect]
     Indication: BREAST CANCER METASTATIC
     Dosage: THERAPY STARTED ON 29-JUL-2008, INTERRUPTED ON 10-OCT-2008.
     Route: 041
     Dates: start: 20081002, end: 20081002

REACTIONS (1)
  - ARTERIAL THROMBOSIS LIMB [None]
